FAERS Safety Report 9157315 (Version 4)
Quarter: 2013Q2

REPORT INFORMATION
  Report Type: Spontaneous
  Country: US (occurrence: None)
  Receive Date: 20130213
  Receipt Date: 20130506
  Transmission Date: 20140414
  Serious: Yes (Hospitalization)
  Sender: FDA-Public Use
  Company Number: 2013044855

PATIENT
  Age: 73 Year
  Sex: Female
  Weight: 78 kg

DRUGS (10)
  1. SUNITINIB MALATE [Suspect]
     Indication: RENAL CELL CARCINOMA
     Dosage: 50 MG, QD X 4 WEEKS, ORAL
     Route: 048
     Dates: start: 20121029, end: 20130105
  2. DALTEPARIN SODIUM (DALTEPARIN SODIUM) UNKNOWN [Suspect]
     Route: 058
     Dates: start: 20121203, end: 20130101
  3. CRESTOR (ROSUVASTAIN) [Concomitant]
  4. DILTIAZEM [Concomitant]
  5. HYDROCORTISONE (HYDROCORTISONE) [Concomitant]
  6. SYNTHROID (LEVOTHYROXINE SODIUM) [Concomitant]
  7. CARDIZEM (DILTIAZEM HYDROCHLORIDE) [Concomitant]
  8. LISINOPRIL (LISINOPRIL) [Concomitant]
  9. LOVAZA (OMEGA-3 MARINE TRIGLYCERIDES) [Concomitant]
  10. PRILOSEC [Concomitant]

REACTIONS (12)
  - Anaemia [None]
  - Renal failure acute [None]
  - Vomiting [None]
  - Diarrhoea [None]
  - Hypotension [None]
  - Nausea [None]
  - Dehydration [None]
  - Hypernatraemia [None]
  - Metabolic acidosis [None]
  - Atrial fibrillation [None]
  - Bradycardia [None]
  - Thrombocytopenia [None]
